FAERS Safety Report 14996765 (Version 1)
Quarter: 2018Q2

REPORT INFORMATION
  Report Type: Spontaneous
  Country: FR (occurrence: FR)
  Receive Date: 20180611
  Receipt Date: 20180611
  Transmission Date: 20180711
  Serious: Yes (Life-Threatening)
  Sender: FDA-Public Use
  Company Number: FR-TEVA-2018-FR-904918

PATIENT
  Age: 49 Year
  Sex: Male
  Weight: 83 kg

DRUGS (4)
  1. MESNA EG 100 MG/ML, SOLUTION INJECTABLE POUR PERFUSION [Suspect]
     Active Substance: MESNA
     Indication: PROPHYLAXIS
     Dosage: 3870 MILLIGRAM DAILY;
     Route: 042
     Dates: start: 20171119, end: 20171121
  2. METHOTREXATE. [Suspect]
     Active Substance: METHOTREXATE
     Indication: PROPHYLAXIS AGAINST GRAFT VERSUS HOST DISEASE
     Dosage: 30 MILLIGRAM DAILY;
     Route: 042
     Dates: start: 20171123, end: 20171128
  3. ENDOXAN [Suspect]
     Active Substance: CYCLOPHOSPHAMIDE
     Indication: BONE MARROW TRANSPLANT
     Dosage: 5160 MILLIGRAM DAILY;
     Route: 042
     Dates: start: 20171119, end: 20171120
  4. CICLOSPORINE [Concomitant]
     Active Substance: CYCLOSPORINE
     Dosage: 3 MG/KG DAILY;
     Route: 048
     Dates: start: 20171127

REACTIONS (1)
  - Venoocclusive liver disease [Recovered/Resolved]

NARRATIVE: CASE EVENT DATE: 20171215
